FAERS Safety Report 9752003 (Version 1)
Quarter: 2013Q4

REPORT INFORMATION
  Report Type: Spontaneous
  Country: US (occurrence: None)
  Receive Date: 20131212
  Receipt Date: 20131212
  Transmission Date: 20140711
  Serious: Yes (Death)
  Sender: FDA-Public Use
  Company Number: None

PATIENT
  Age: 17 Year
  Sex: Female
  Weight: 106.6 kg

DRUGS (2)
  1. REGLAN [Suspect]
     Indication: NAUSEA
     Dosage: 1 PILL
     Dates: start: 20130828
  2. REGLAN [Suspect]
     Indication: VOMITING
     Dosage: 1 PILL
     Dates: start: 20130828

REACTIONS (4)
  - Panic attack [None]
  - Peritonitis [None]
  - Intestinal perforation [None]
  - Fall [None]
